FAERS Safety Report 23469173 (Version 1)
Quarter: 2024Q1

REPORT INFORMATION
  Report Type: Spontaneous
  Country: CA (occurrence: CA)
  Receive Date: 20240202
  Receipt Date: 20240202
  Transmission Date: 20240409
  Serious: Yes (Other)
  Sender: FDA-Public Use
  Company Number: CA-CELLTRION INC.-2021CA006973

PATIENT

DRUGS (21)
  1. INFLECTRA [Suspect]
     Active Substance: INFLIXIMAB-DYYB
     Indication: Colitis ulcerative
     Dosage: 500 MG, Q 0, 2 AND 6 WEEKS MAINTENANCE: Q 8 WEEKS
     Route: 042
     Dates: start: 20210505
  2. INFLECTRA [Suspect]
     Active Substance: INFLIXIMAB-DYYB
     Dosage: 500 MG, Q 0, 2 AND 6 WEEKSMAINTENANCE: Q 8 WEEKS
     Route: 042
     Dates: start: 20210615, end: 20210615
  3. INFLECTRA [Suspect]
     Active Substance: INFLIXIMAB-DYYB
     Dosage: 500 MG, Q 0, 2 AND 6 WEEKSMAINTENANCE: Q 8 WEEKS
     Route: 042
     Dates: start: 20210810
  4. INFLECTRA [Suspect]
     Active Substance: INFLIXIMAB-DYYB
     Dosage: 500 MG, Q 0, 2 AND 6 WEEKSMAINTENANCE: Q 8 WEEKS
     Route: 042
     Dates: start: 20211005, end: 20211005
  5. INFLECTRA [Suspect]
     Active Substance: INFLIXIMAB-DYYB
     Dosage: 500 MG, Q 0, 2 AND 6 WEEKSMAINTENANCE: Q 8 WEEKS
     Route: 042
     Dates: start: 20211130
  6. INFLECTRA [Suspect]
     Active Substance: INFLIXIMAB-DYYB
     Dosage: 500 MG, Q 0, 2 AND 6 WEEKSMAINTENANCE: Q 8 WEEKS
     Route: 042
     Dates: start: 20220125
  7. INFLECTRA [Suspect]
     Active Substance: INFLIXIMAB-DYYB
     Dosage: 500 MG, Q 0, 2 AND 6 WEEKSMAINTENANCE: Q 8 WEEKS
     Route: 042
     Dates: start: 20220322
  8. INFLECTRA [Suspect]
     Active Substance: INFLIXIMAB-DYYB
     Dosage: 500 MG, Q 0, 2 AND 6 WEEKSMAINTENANCE: Q 8 WEEKS
     Route: 042
     Dates: start: 20220517
  9. INFLECTRA [Suspect]
     Active Substance: INFLIXIMAB-DYYB
     Dosage: 500 MG, Q 0, 2 AND 6 WEEKS MAINTENANCE: Q 8 WEEKS
     Route: 042
     Dates: start: 20221229
  10. INFLECTRA [Suspect]
     Active Substance: INFLIXIMAB-DYYB
     Dosage: 500 MG Q 0, 2 AND 6 WEEKS MAINTENANCE: Q 8 WEEKS
     Route: 042
     Dates: start: 20230222
  11. INFLECTRA [Suspect]
     Active Substance: INFLIXIMAB-DYYB
     Dosage: 500 MG Q 0, 2 AND 6 WEEKS MAINTENANCE: Q 8 WEEKS
     Route: 042
     Dates: start: 20230809
  12. INFLECTRA [Suspect]
     Active Substance: INFLIXIMAB-DYYB
     Dosage: 500MG, 8 WEEKS
     Route: 042
     Dates: start: 20231004
  13. INFLECTRA [Suspect]
     Active Substance: INFLIXIMAB-DYYB
     Dosage: 500MG, Q 0, 2 AND 6 WEEKSMAINTENANCE: Q 8 WEEKS
     Route: 042
     Dates: start: 20231129
  14. INFLECTRA [Suspect]
     Active Substance: INFLIXIMAB-DYYB
     Dosage: 500 MG 8 WEEKS
     Route: 042
     Dates: start: 20240124
  15. IMURAN [Concomitant]
     Active Substance: AZATHIOPRINE
     Dosage: 175 MG, DOSING FREQUENCY UNAVAILABLE, UNKNOWN,
     Route: 065
  16. PREDNISONE [Concomitant]
     Active Substance: PREDNISONE
     Dosage: 25 MG, DOSING FREQUENCY UNAVAILABLE, UNKNOWN
     Route: 065
  17. WELLBUTRIN [Concomitant]
     Active Substance: BUPROPION HYDROCHLORIDE
     Dosage: UNK
  18. PREGNYL [Concomitant]
     Active Substance: CHORIOGONADOTROPIN ALFA
     Dosage: UNK
  19. ANASTROZOLE [Concomitant]
     Active Substance: ANASTROZOLE
     Dosage: UNK
  20. PRASTERONE [Concomitant]
     Active Substance: PRASTERONE
     Dosage: UNK
  21. TESTOSTERONE [Concomitant]
     Active Substance: TESTOSTERONE
     Dosage: UNK

REACTIONS (6)
  - Breast operation [Unknown]
  - Wound [Recovering/Resolving]
  - Blood pressure diastolic decreased [Recovered/Resolved]
  - Condition aggravated [Recovered/Resolved]
  - Off label use [Unknown]
  - Intentional product use issue [Unknown]

NARRATIVE: CASE EVENT DATE: 20210615
